FAERS Safety Report 17794906 (Version 1)
Quarter: 2020Q2

REPORT INFORMATION
  Report Type: Report from Study
  Country: ES (occurrence: ES)
  Receive Date: 20200515
  Receipt Date: 20200515
  Transmission Date: 20200714
  Serious: Yes (Life-Threatening, Hospitalization)
  Sender: FDA-Public Use
  Company Number: ES-MYLANLABS-2020M1047829

PATIENT
  Age: 87 Year
  Sex: Female

DRUGS (6)
  1. PREDNISONE. [Interacting]
     Active Substance: PREDNISONE
     Indication: OPTIC NEUROPATHY
     Dosage: 40 MILLIGRAM, QD
     Route: 048
     Dates: start: 201707, end: 20170828
  2. ADIRO [Interacting]
     Active Substance: ASPIRIN
     Indication: ANGINA PECTORIS
     Dosage: 100 MILLIGRAM, QD
     Route: 048
     Dates: start: 20170825, end: 20170828
  3. CLEXANE [Interacting]
     Active Substance: ENOXAPARIN SODIUM
     Indication: ANGINA PECTORIS
     Dosage: 40 MILLIGRAM, QD
     Route: 058
     Dates: start: 20170825, end: 20170828
  4. CLOPIDOGREL [Suspect]
     Active Substance: CLOPIDOGREL BISULFATE
     Indication: ANGINA PECTORIS
     Dosage: 75 MILLIGRAM, QD
     Route: 048
     Dates: start: 20170721, end: 20170828
  5. UNIKET [Concomitant]
     Active Substance: ISOSORBIDE MONONITRATE
     Dosage: 120 MILLIGRAM, QD, 20 TABLETS
     Route: 048
     Dates: end: 20170828
  6. SIMVASTATIN. [Interacting]
     Active Substance: SIMVASTATIN
     Indication: DYSLIPIDAEMIA
     Dosage: 10 MILLIGRAM, QD
     Route: 048

REACTIONS (2)
  - Drug interaction [Unknown]
  - Lower gastrointestinal haemorrhage [Recovered/Resolved]

NARRATIVE: CASE EVENT DATE: 20170829
